FAERS Safety Report 18619968 (Version 2)
Quarter: 2021Q1

REPORT INFORMATION
  Report Type: Report from Study
  Country: BR (occurrence: BR)
  Receive Date: 20201215
  Receipt Date: 20210111
  Transmission Date: 20210419
  Serious: Yes (Hospitalization)
  Sender: FDA-Public Use
  Company Number: BR-JNJFOC-20201222472

PATIENT
  Age: 12 Year
  Sex: Female
  Weight: 50.5 kg

DRUGS (3)
  1. INFLIXIMAB, RECOMBINANT [Suspect]
     Active Substance: INFLIXIMAB
     Indication: CROHN^S DISEASE
     Dosage: INFLIXIMAB 100 MG  INFUSE 3 VIALS IV AT WEEKS 2, 6 AND AFTER 8/8 WEEKS
     Route: 042
     Dates: start: 20201124
  2. REMICADE [Suspect]
     Active Substance: INFLIXIMAB
     Indication: CROHN^S DISEASE
     Dosage: INFLIXIMAB 100 MG  INFUSE 3 VIALS IV AT WEEKS 2, 6 AND AFTER 8/8 WEEKS
     Route: 042
     Dates: start: 20201124
  3. AZATHIOPRINE. [Concomitant]
     Active Substance: AZATHIOPRINE

REACTIONS (4)
  - Nausea [Recovering/Resolving]
  - Decreased appetite [Recovering/Resolving]
  - Abdominal pain upper [Recovering/Resolving]
  - Vomiting [Recovering/Resolving]

NARRATIVE: CASE EVENT DATE: 20201207
